FAERS Safety Report 10296627 (Version 2)
Quarter: 2014Q3

REPORT INFORMATION
  Report Type: Spontaneous
  Country: US (occurrence: None)
  Receive Date: 20140708
  Receipt Date: 20140715
  Transmission Date: 20150326
  Serious: Yes (Hospitalization)
  Sender: FDA-Public Use
  Company Number: 2014SA088648

PATIENT
  Age: 13 Year
  Sex: Female
  Weight: 59 kg

DRUGS (10)
  1. CITALOPRAM [Suspect]
     Active Substance: CITALOPRAM HYDROBROMIDE
     Indication: PRODUCT USED FOR UNKNOWN INDICATION
     Route: 048
  2. ACETAMINOPHEN. [Suspect]
     Active Substance: ACETAMINOPHEN
     Indication: COMPLETED SUICIDE
     Route: 048
  3. NAPROXEN. [Suspect]
     Active Substance: NAPROXEN
     Indication: COMPLETED SUICIDE
     Route: 048
  4. CITALOPRAM [Suspect]
     Active Substance: CITALOPRAM HYDROBROMIDE
     Indication: COMPLETED SUICIDE
     Route: 048
  5. ACETAMINOPHEN. [Suspect]
     Active Substance: ACETAMINOPHEN
     Indication: PRODUCT USED FOR UNKNOWN INDICATION
     Route: 048
  6. NAPROXEN. [Suspect]
     Active Substance: NAPROXEN
     Indication: PRODUCT USED FOR UNKNOWN INDICATION
     Route: 048
  7. DIPHENHYDRAMINE [Suspect]
     Active Substance: DIPHENHYDRAMINE
     Indication: COMPLETED SUICIDE
     Route: 048
  8. BUPROPION [Suspect]
     Active Substance: BUPROPION
     Indication: PRODUCT USED FOR UNKNOWN INDICATION
     Route: 048
  9. BUPROPION [Suspect]
     Active Substance: BUPROPION
     Indication: COMPLETED SUICIDE
     Route: 048
  10. DIPHENHYDRAMINE [Suspect]
     Active Substance: DIPHENHYDRAMINE
     Indication: PRODUCT USED FOR UNKNOWN INDICATION
     Route: 048

REACTIONS (23)
  - Muscle rigidity [None]
  - Rhabdomyolysis [None]
  - Electrocardiogram QT prolonged [None]
  - Urinary retention [None]
  - Hallucination [None]
  - Dermatillomania [None]
  - Anhidrosis [None]
  - Toxicity to various agents [None]
  - Tremor [None]
  - Hyperthermia [None]
  - Myoclonus [None]
  - Overdose [None]
  - Gastrointestinal sounds abnormal [None]
  - Mucosal dryness [None]
  - Tachypnoea [None]
  - Mydriasis [None]
  - Suicide attempt [None]
  - Flushing [None]
  - Agitation [None]
  - Anxiety [None]
  - Disorientation [None]
  - Sinus tachycardia [None]
  - Hypertension [None]
